FAERS Safety Report 16226525 (Version 1)
Quarter: 2019Q2

REPORT INFORMATION
  Report Type: Spontaneous
  Country: US (occurrence: US)
  Receive Date: 20190423
  Receipt Date: 20190423
  Transmission Date: 20190711
  Serious: Yes (Hospitalization)
  Sender: FDA-Public Use
  Company Number: US-CIPLA LTD.-2019US02122

PATIENT

DRUGS (5)
  1. MORPHINE [Suspect]
     Active Substance: MORPHINE
     Indication: PHANTOM LIMB SYNDROME
     Dosage: UNK
     Route: 065
  2. GABAPENTIN. [Suspect]
     Active Substance: GABAPENTIN
     Indication: PHANTOM LIMB SYNDROME
     Dosage: UNK
     Route: 065
  3. MORPHINE [Suspect]
     Active Substance: MORPHINE
     Dosage: UNK, AVERAGED JUST 38 MEQ/D, AT DISCHARGE THREE WEEKS LATER
     Route: 065
  4. MORPHINE [Suspect]
     Active Substance: MORPHINE
     Dosage: UNK, AVERAGE DAILY DOSE RAPIDLY ROSE TO 93 MEQ 4 WEEKS AFTER AMPUTATION
     Route: 065
  5. MORPHINE [Suspect]
     Active Substance: MORPHINE
     Dosage: 35 MILLIEQUIVALENT PER DAY, LAST FIVE DAYS OF INFUSION
     Route: 065

REACTIONS (2)
  - Off label use [Unknown]
  - Drug ineffective for unapproved indication [Unknown]
